FAERS Safety Report 7149111-0 (Version None)
Quarter: 2010Q4

REPORT INFORMATION
  Report Type: 
  Country: None (occurrence: None)
  Receive Date: 20101209
  Receipt Date: 20101015
  Transmission Date: 20110411
  Serious: Yes (Hospitalization, Other)
  Sender: FDA-Public Use
  Company Number: FR-MERCK-1010FRA00062

PATIENT
  Age: 52 Year
  Sex: Female

DRUGS (4)
  1. ISENTRESS [Suspect]
     Indication: HIV INFECTION
     Route: 048
     Dates: start: 20100101
  2. DARUNAVIR [Concomitant]
     Route: 048
  3. RITONAVIR [Concomitant]
     Route: 048
  4. ETRAVIRINE [Concomitant]
     Route: 048

REACTIONS (1)
  - PANCREATITIS [None]
